FAERS Safety Report 5637290-3 (Version None)
Quarter: 2008Q1

REPORT INFORMATION
  Report Type: 
  Country: None (occurrence: None)
  Receive Date: 20080225
  Receipt Date: 20080219
  Transmission Date: 20080703
  Serious: Yes (Hospitalization)
  Sender: FDA-Public Use
  Company Number: NL-AVENTIS-200811598GDDC

PATIENT
  Age: 69 Year
  Sex: Male

DRUGS (3)
  1. DOCETAXEL [Suspect]
     Indication: PROSTATE CANCER
     Route: 042
     Dates: start: 20071022
  2. PREDNISON [Suspect]
     Indication: PROSTATE CANCER
     Route: 048
     Dates: start: 20071022
  3. RISEDRONATE SODIUM [Suspect]
     Indication: PROSTATE CANCER
     Route: 048
     Dates: start: 20071022

REACTIONS (2)
  - HYPONATRAEMIA [None]
  - PYREXIA [None]
